FAERS Safety Report 4575299-1 (Version None)
Quarter: 2005Q1

REPORT INFORMATION
  Report Type: 
  Country: None (occurrence: None)
  Receive Date: 20050127
  Receipt Date: 20050127
  Transmission Date: 20050727
  Serious: Yes (Life-Threatening, Hospitalization)
  Sender: FDA-Public Use
  Company Number: None

PATIENT
  Age: 67 Year
  Sex: Female
  Weight: 99 kg

DRUGS (1)
  1. GEMCITABINE (ARMA) [Suspect]
     Indication: PANCREATIC CARCINOMA
     Dosage: 2086 MG
     Dates: start: 20050113

REACTIONS (20)
  - ABDOMINAL DISTENSION [None]
  - ABDOMINAL PAIN [None]
  - ASTHENIA [None]
  - ATRIAL FIBRILLATION [None]
  - BLOOD BILIRUBIN ABNORMAL [None]
  - BLOOD PRESSURE SYSTOLIC INCREASED [None]
  - DYSPNOEA [None]
  - ESCHERICHIA SEPSIS [None]
  - HEPATIC ENZYME ABNORMAL [None]
  - LEUKOCYTOSIS [None]
  - NAUSEA [None]
  - OEDEMA PERIPHERAL [None]
  - PANCREAS INFECTION [None]
  - PANCREATIC PSEUDOCYST [None]
  - PANCREATITIS [None]
  - RESPIRATORY FAILURE [None]
  - SEPTIC SHOCK [None]
  - STENT OCCLUSION [None]
  - TACHYCARDIA [None]
  - VOMITING [None]
